FAERS Safety Report 22639333 (Version 1)
Quarter: 2023Q2

REPORT INFORMATION
  Report Type: Other
  Country: JP (occurrence: None)
  Receive Date: 20230626
  Receipt Date: 20230626
  Transmission Date: 20230722
  Serious: Yes (Other)
  Sender: FDA-Public Use
  Company Number: JP-ROCHE-3371849

PATIENT

DRUGS (1)
  1. ATEZOLIZUMAB [Suspect]
     Active Substance: ATEZOLIZUMAB
     Indication: Non-small cell lung cancer
     Route: 065

REACTIONS (8)
  - Hepatocellular injury [Unknown]
  - Mixed liver injury [Unknown]
  - Cholestatic liver injury [Unknown]
  - Interstitial lung disease [Unknown]
  - Colitis [Unknown]
  - Hypothyroidism [Unknown]
  - Rash [Unknown]
  - Renal impairment [Unknown]
